FAERS Safety Report 19914010 (Version 1)
Quarter: 2021Q4

REPORT INFORMATION
  Report Type: Spontaneous
  Country: KR (occurrence: KR)
  Receive Date: 20211004
  Receipt Date: 20211004
  Transmission Date: 20220303
  Serious: Yes (Other)
  Sender: FDA-Public Use
  Company Number: KR-VIIV HEALTHCARE ULC-KR2021APC204047

PATIENT
  Age: 37 Year
  Sex: Male
  Weight: 60.8 kg

DRUGS (5)
  1. KIVEXA [Suspect]
     Active Substance: ABACAVIR SULFATE\LAMIVUDINE
     Indication: HIV infection
     Dosage: UNK
     Route: 048
     Dates: start: 20130529
  2. AMOXICILLIN [Concomitant]
     Active Substance: AMOXICILLIN
     Indication: Cellulitis
     Dosage: UNK
     Dates: start: 20140519, end: 20140522
  3. BETA-LACTAMASE INHIBITOR [Concomitant]
     Indication: Cellulitis
     Dosage: UNK
     Dates: start: 20140519, end: 20140522
  4. PNEUMOCOCCUS PURIFIED POLYSACCHARIDE ANTIGEN [Concomitant]
     Indication: Prophylaxis
     Dosage: UNK
     Route: 030
     Dates: start: 20130925, end: 20130925
  5. TRAMADOL [Concomitant]
     Active Substance: TRAMADOL
     Indication: Cellulitis
     Dosage: UNK, EXTENDED RELEASE FILM COATED TABLETS
     Route: 048
     Dates: start: 20140519, end: 20140522

REACTIONS (1)
  - Cellulitis [Recovered/Resolved]

NARRATIVE: CASE EVENT DATE: 20140519
